APPROVED DRUG PRODUCT: ALIQOPA
Active Ingredient: COPANLISIB DIHYDROCHLORIDE
Strength: 60MG/VIAL
Dosage Form/Route: POWDER;INTRAVENOUS
Application: N209936 | Product #001
Applicant: BAYER HEALTHCARE PHARMACEUTICALS INC
Approved: Sep 14, 2017 | RLD: Yes | RS: No | Type: DISCN

PATENTS:
Patent 9636344 | Expires: Mar 29, 2032
Patent RE46856 | Expires: Oct 22, 2029
Patent 10383876 | Expires: Mar 29, 2032